FAERS Safety Report 12866974 (Version 3)
Quarter: 2016Q4

REPORT INFORMATION
  Report Type: Other
  Country: US (occurrence: US)
  Receive Date: 20161020
  Receipt Date: 20161024
  Transmission Date: 20170207
  Serious: Yes (Death)
  Sender: FDA-Public Use
  Company Number: US-ACORDA-ACO_129537_2016

PATIENT
  Age: 59 Year
  Sex: Male

DRUGS (7)
  1. LISINOPRIL AND HYDROCHLOROTHIAZIDE [Concomitant]
     Active Substance: HYDROCHLOROTHIAZIDE\LISINOPRIL
  2. TAMSULOSIN HCL [Concomitant]
     Active Substance: TAMSULOSIN
  3. MULTIVITAMINS [Concomitant]
     Active Substance: VITAMINS
  4. TECFIDERA [Concomitant]
     Active Substance: DIMETHYL FUMARATE
  5. AMPYRA [Suspect]
     Active Substance: DALFAMPRIDINE
     Indication: PRODUCT USED FOR UNKNOWN INDICATION
     Dosage: 10 MG, BID
     Route: 048
     Dates: start: 201302
  6. FLOMAX [Concomitant]
     Active Substance: TAMSULOSIN HYDROCHLORIDE
  7. COENZYME Q10 [Concomitant]
     Active Substance: UBIDECARENONE

REACTIONS (1)
  - Death [Fatal]

NARRATIVE: CASE EVENT DATE: 20160930
